FAERS Safety Report 7119314-X (Version None)
Quarter: 2010Q4

REPORT INFORMATION
  Report Type: 
  Country: None (occurrence: None)
  Receive Date: 20101123
  Receipt Date: 20101118
  Transmission Date: 20110411
  Serious: Yes (Life-Threatening, Hospitalization, Other)
  Sender: FDA-Public Use
  Company Number: US-CELGENEUS-163-21880-10071424

PATIENT
  Sex: Female
  Weight: 67.646 kg

DRUGS (14)
  1. REVLIMID [Suspect]
     Route: 048
     Dates: start: 20100629, end: 20100724
  2. STEROID [Suspect]
     Route: 065
  3. DECADRON [Concomitant]
     Indication: MULTIPLE MYELOMA
     Route: 065
  4. ZOCOR [Concomitant]
     Route: 065
  5. IRON SULFATETHIAMIN COMPOUND TAB [Concomitant]
     Route: 065
  6. CYPROHEPTADINE HCL [Concomitant]
     Route: 065
  7. POTASSIUM CHLORIDE [Concomitant]
     Route: 065
  8. CALCIUM GLUCONATE [Concomitant]
     Route: 065
  9. PROTONIX [Concomitant]
     Route: 048
  10. FERROUS SULFATE [Concomitant]
     Route: 065
  11. PERIACTIN [Concomitant]
     Route: 065
  12. COMPAZINE [Concomitant]
     Route: 065
  13. PROCRIT [Concomitant]
     Route: 065
     Dates: start: 20100101
  14. TRANSFUSION [Concomitant]
     Route: 051
     Dates: start: 20100101

REACTIONS (7)
  - CLOSTRIDIUM DIFFICILE COLITIS [None]
  - DEEP VEIN THROMBOSIS [None]
  - HYPERTROPHIC CARDIOMYOPATHY [None]
  - HYPOTENSION [None]
  - RENAL FAILURE [None]
  - THROMBOCYTOPENIA [None]
  - UROSEPSIS [None]
